FAERS Safety Report 9633585 (Version 1)
Quarter: 2013Q4

REPORT INFORMATION
  Report Type: Spontaneous
  Country: BR (occurrence: BR)
  Receive Date: 20131021
  Receipt Date: 20131021
  Transmission Date: 20140711
  Serious: Yes (Hospitalization, Other)
  Sender: FDA-Public Use
  Company Number: CHPA2013BR015738

PATIENT
  Age: 68 Year
  Sex: Female

DRUGS (4)
  1. CALCIUM-SANDOZ FORTE + FORTISSIMUM [Suspect]
     Indication: MINERAL SUPPLEMENTATION
     Dosage: 1000 MG, BID
     Route: 048
     Dates: start: 2005
  2. LOSARTAN [Suspect]
     Indication: HYPERTENSION
     Dosage: 50 MG, QD
     Dates: start: 2000
  3. HYDROCHLOROTHIAZIDE [Suspect]
     Indication: HYPERTENSION
     Dosage: 25 MG, QD
     Dates: start: 2000
  4. DONAREN [Suspect]
     Indication: DEPRESSION
     Dosage: 1 DF, QD

REACTIONS (7)
  - Malaise [Recovering/Resolving]
  - Confusional state [Recovering/Resolving]
  - Depression [Recovering/Resolving]
  - Tremor [Recovering/Resolving]
  - Asthenia [Recovering/Resolving]
  - Anxiety [Recovering/Resolving]
  - Incorrect dose administered [Unknown]
